FAERS Safety Report 12694412 (Version 1)
Quarter: 2016Q3

REPORT INFORMATION
  Report Type: Spontaneous
  Country: NL (occurrence: NL)
  Receive Date: 20160829
  Receipt Date: 20160829
  Transmission Date: 20161109
  Serious: Yes (Other)
  Sender: FDA-Public Use
  Company Number: NL-BAXALTA-2016BLT005745

PATIENT
  Age: 46 Year
  Sex: Female
  Weight: 79 kg

DRUGS (5)
  1. DEXAMETHASONE. [Concomitant]
     Active Substance: DEXAMETHASONE
     Indication: PRODUCT USED FOR UNKNOWN INDICATION
     Dosage: PRE-INFUSION AND POST-INFUSION WITH PAST IMMUNOGLOBULIN THERAPY
     Route: 065
  2. OCTAGAM IMMUNE GLOBULIN (HUMAN) [Concomitant]
     Active Substance: HUMAN IMMUNOGLOBULIN G
     Indication: HYPOGAMMAGLOBULINAEMIA
     Route: 065
  3. NANOGAM [Concomitant]
     Active Substance: HUMAN IMMUNOGLOBULIN G
     Indication: HYPOGAMMAGLOBULINAEMIA
  4. IVEGAM [Concomitant]
     Indication: HYPOGAMMAGLOBULINAEMIA
     Route: 065
  5. KIOVIG [Suspect]
     Active Substance: HUMAN IMMUNOGLOBULIN G
     Indication: HYPOGAMMAGLOBULINAEMIA
     Dosage: 25 G, 1X A MONTH
     Route: 042
     Dates: start: 20160715, end: 20160715

REACTIONS (8)
  - Headache [Recovered/Resolved with Sequelae]
  - Palpitations [Recovered/Resolved with Sequelae]
  - Dyspnoea [Recovered/Resolved with Sequelae]
  - Therapeutic response unexpected [Recovered/Resolved with Sequelae]
  - Dizziness [Recovered/Resolved with Sequelae]
  - Back pain [Recovered/Resolved with Sequelae]
  - Slow response to stimuli [Recovered/Resolved with Sequelae]
  - Arrhythmia [Unknown]

NARRATIVE: CASE EVENT DATE: 20150715
